FAERS Safety Report 9130073 (Version 1)
Quarter: 2013Q1

REPORT INFORMATION
  Report Type: Spontaneous
  Country: US (occurrence: US)
  Receive Date: 20130228
  Receipt Date: 20130228
  Transmission Date: 20140127
  Serious: Yes (Hospitalization)
  Sender: FDA-Public Use
  Company Number: US-TEVA-388743USA

PATIENT
  Age: 23 Month
  Sex: Male

DRUGS (1)
  1. BACLOFEN [Suspect]
     Indication: TOXICITY TO VARIOUS AGENTS
     Route: 065

REACTIONS (3)
  - Toxicity to various agents [Recovered/Resolved]
  - Coma [Recovered/Resolved]
  - Respiratory depression [Recovered/Resolved]
